FAERS Safety Report 8881909 (Version 1)
Quarter: 2012Q4

REPORT INFORMATION
  Report Type: 
  Country: US (occurrence: US)
  Receive Date: 20121102
  Receipt Date: 20121102
  Transmission Date: 20130627
  Serious: Yes (Other)
  Sender: FDA-Public Use
  Company Number: CHPA2012US022563

PATIENT
  Age: 55 Year
  Sex: Female

DRUGS (3)
  1. BENEFIBER W/ WHEAT DEXTRIN [Suspect]
     Indication: SUPPLEMENTATION THERAPY
     Dosage: Unk, three times daily
     Route: 048
  2. BUFFERIN REGULAR STRENGTH [Suspect]
     Indication: ATRIAL FIBRILLATION
     Dosage: Unk, Unk
     Route: 048
  3. ASPIRIN [Concomitant]

REACTIONS (1)
  - Atrial fibrillation [Not Recovered/Not Resolved]
